FAERS Safety Report 4782825-6 (Version None)
Quarter: 2005Q3

REPORT INFORMATION
  Report Type: 
  Country: None (occurrence: None)
  Receive Date: 20050929
  Receipt Date: 20050923
  Transmission Date: 20060218
  Serious: Yes (Death)
  Sender: FDA-Public Use
  Company Number: PHBS2005IN14124

PATIENT
  Sex: Female
  Weight: 2 kg

DRUGS (3)
  1. OXYTOCIN [Suspect]
     Route: 064
  2. NIFEDIPINE [Suspect]
     Route: 064
  3. METHYLDOPA [Concomitant]

REACTIONS (6)
  - BLOOD LOSS ANAEMIA NEONATAL [None]
  - BRADYCARDIA FOETAL [None]
  - DRUG EXPOSURE DURING PREGNANCY [None]
  - HAEMORRHAGE FOETAL [None]
  - PALLOR [None]
  - VASA PRAEVIA [None]
